FAERS Safety Report 8954894 (Version 1)
Quarter: 2012Q4

REPORT INFORMATION
  Report Type: Spontaneous
  Country: US (occurrence: None)
  Receive Date: 20121205
  Receipt Date: 20121205
  Transmission Date: 20130627
  Serious: No
  Sender: FDA-Public Use
  Company Number: None

PATIENT
  Age: 62 Year
  Sex: Male

DRUGS (1)
  1. COUMADIN [Suspect]

REACTIONS (4)
  - Medication error [None]
  - International normalised ratio increased [None]
  - Drug interaction [None]
  - Incorrect drug administration duration [None]
